FAERS Safety Report 21805888 (Version 1)
Quarter: 2023Q1

REPORT INFORMATION
  Report Type: Spontaneous
  Country: US (occurrence: US)
  Receive Date: 20230102
  Receipt Date: 20230102
  Transmission Date: 20230417
  Serious: No
  Sender: FDA-Public Use
  Company Number: US-SA-SAC20221230001164

PATIENT
  Age: 85 Year
  Sex: Female
  Weight: 74 kg

DRUGS (29)
  1. FABRAZYME [Suspect]
     Active Substance: AGALSIDASE BETA
     Indication: Fabry^s disease
     Dosage: 85 MG, QOW
     Route: 042
     Dates: start: 20211222
  2. DIPHENHYDRAMINE [Concomitant]
     Active Substance: DIPHENHYDRAMINE
  3. COLCHICINE [Concomitant]
     Active Substance: COLCHICINE
  4. METOPROLOL SUCCINATE [Concomitant]
     Active Substance: METOPROLOL SUCCINATE
  5. EPINEPHRINE [Concomitant]
     Active Substance: EPINEPHRINE
  6. GALAFOLD [Concomitant]
     Active Substance: MIGALASTAT HYDROCHLORIDE
  7. FUROSEMIDE [Concomitant]
     Active Substance: FUROSEMIDE
  8. BREO ELLIPTA [Concomitant]
     Active Substance: FLUTICASONE FUROATE\VILANTEROL TRIFENATATE
  9. VITAMIN D3 [Concomitant]
     Active Substance: CHOLECALCIFEROL
  10. IPRATROPIUM BROMIDE [Concomitant]
     Active Substance: IPRATROPIUM BROMIDE
  11. ACETAMINOPHEN [Concomitant]
     Active Substance: ACETAMINOPHEN
  12. STERILE WATER [Concomitant]
     Active Substance: WATER
  13. CALCIUM [Concomitant]
     Active Substance: CALCIUM
  14. ZINC [Concomitant]
     Active Substance: ZINC
  15. ALBUTEROL SULFATE [Concomitant]
     Active Substance: ALBUTEROL SULFATE
  16. FARXIGA [Concomitant]
     Active Substance: DAPAGLIFLOZIN PROPANEDIOL
  17. LISINOPRIL [Concomitant]
     Active Substance: LISINOPRIL
  18. BIOTIN [Concomitant]
     Active Substance: BIOTIN
  19. ELIQUIS [Concomitant]
     Active Substance: APIXABAN
  20. ALLOPURINOL [Concomitant]
     Active Substance: ALLOPURINOL
  21. ALENDRONATE SODIUM [Concomitant]
     Active Substance: ALENDRONATE SODIUM
  22. CLOTRIMAZOLE [Concomitant]
     Active Substance: CLOTRIMAZOLE
  23. ASCORBIC ACID [Concomitant]
     Active Substance: ASCORBIC ACID
  24. SODIUM CHLORIDE [Concomitant]
     Active Substance: SODIUM CHLORIDE
  25. MAGNESIUM [Concomitant]
     Active Substance: MAGNESIUM
  26. OMEPRAZOLE [Concomitant]
     Active Substance: OMEPRAZOLE
  27. DOXYCYCLINE HYCLATE [Concomitant]
     Active Substance: DOXYCYCLINE HYCLATE
  28. LOVASTATIN [Concomitant]
     Active Substance: LOVASTATIN
  29. BACTRIM [Concomitant]
     Active Substance: SULFAMETHOXAZOLE\TRIMETHOPRIM

REACTIONS (4)
  - Contusion [Unknown]
  - Tenderness [Unknown]
  - Erythema [Unknown]
  - Pain [Unknown]
